FAERS Safety Report 8512540-4 (Version None)
Quarter: 2012Q3

REPORT INFORMATION
  Report Type: 
  Country: None (occurrence: None)
  Receive Date: 20120716
  Receipt Date: 20120709
  Transmission Date: 20120928
  Serious: Yes (Other)
  Sender: FDA-Public Use
  Company Number: CA-ROCHE-GNE319289

PATIENT
  Sex: Female

DRUGS (5)
  1. XOLAIR [Suspect]
     Dates: start: 20120213
  2. XOLAIR [Suspect]
     Dates: start: 20120312
  3. XOLAIR [Suspect]
     Indication: ASTHMA
     Dosage: 300 MG, Q4W
     Route: 058
     Dates: start: 20070607
  4. ALVESCO [Concomitant]
  5. XOLAIR [Suspect]
     Dosage: UNK
     Dates: start: 20110411

REACTIONS (13)
  - HEPATIC CYST [None]
  - PAIN [None]
  - OSTEOMYELITIS [None]
  - DYSPNOEA [None]
  - BLOOD PRESSURE DECREASED [None]
  - OROPHARYNGEAL PAIN [None]
  - INJECTION SITE PRURITUS [None]
  - ASTHMA [None]
  - PRODUCTIVE COUGH [None]
  - PULMONARY CONGESTION [None]
  - INFLUENZA [None]
  - INFECTION [None]
  - TOOTHACHE [None]
